FAERS Safety Report 9367004 (Version 1)
Quarter: 2013Q2

REPORT INFORMATION
  Report Type: Spontaneous
  Country: FR (occurrence: FR)
  Receive Date: 20130625
  Receipt Date: 20130625
  Transmission Date: 20140414
  Serious: Yes (Life-Threatening)
  Sender: FDA-Public Use
  Company Number: FR-CUBIST PHARMACEUTICAL, INC.-2013CBST000530

PATIENT
  Sex: 0

DRUGS (7)
  1. CUBICIN [Suspect]
     Indication: ANTIBIOTIC PROPHYLAXIS
     Dosage: UNK UNK, UNK
     Route: 042
     Dates: start: 20110606, end: 20110617
  2. CUBICIN [Suspect]
     Indication: OFF LABEL USE
  3. VANCOMYCIN [Suspect]
     Indication: PRODUCT USED FOR UNKNOWN INDICATION
     Dosage: UNK UNK, UNK
     Route: 042
     Dates: start: 20110506, end: 20110510
  4. TAZOCILLINE [Suspect]
     Indication: PRODUCT USED FOR UNKNOWN INDICATION
     Dosage: UNK UNK, UNK
     Route: 042
     Dates: start: 20110506, end: 20110606
  5. TIENAM [Suspect]
     Indication: ANTIBIOTIC PROPHYLAXIS
     Dosage: 750 MG, TID
     Route: 042
     Dates: start: 20110606, end: 20110617
  6. CANCIDAS [Suspect]
     Indication: PRODUCT USED FOR UNKNOWN INDICATION
     Dosage: 50 MG, UNK
     Route: 042
     Dates: start: 20110606, end: 20110617
  7. GENTAMICIN [Concomitant]
     Indication: PRODUCT USED FOR UNKNOWN INDICATION
     Dosage: UNK UNK, UNK
     Route: 065
     Dates: start: 20110506

REACTIONS (2)
  - Prothrombin time shortened [Recovered/Resolved]
  - Coagulation factor V level decreased [Recovered/Resolved]
